FAERS Safety Report 19331913 (Version 4)
Quarter: 2021Q3

REPORT INFORMATION
  Report Type: Spontaneous
  Country: TR (occurrence: TR)
  Receive Date: 20210529
  Receipt Date: 20210818
  Transmission Date: 20211014
  Serious: Yes (Other)
  Sender: FDA-Public Use
  Company Number: NVSC2021TR115326

PATIENT
  Age: 32 Year
  Sex: Female

DRUGS (1)
  1. ONEPTUS [Suspect]
     Active Substance: SACUBITRIL\VALSARTAN
     Indication: PRODUCT USED FOR UNKNOWN INDICATION
     Dosage: UNK, BID
     Route: 048
     Dates: start: 2019

REACTIONS (2)
  - Hypertension [Unknown]
  - Arrhythmia [Unknown]

NARRATIVE: CASE EVENT DATE: 202103
